FAERS Safety Report 16095625 (Version 1)
Quarter: 2019Q1

REPORT INFORMATION
  Report Type: Spontaneous
  Country: US (occurrence: US)
  Receive Date: 20190320
  Receipt Date: 20190320
  Transmission Date: 20190418
  Serious: Yes (Other)
  Sender: FDA-Public Use
  Company Number: US-ENDO PHARMACEUTICALS INC-2019-102711

PATIENT
  Sex: Female
  Weight: 76.64 kg

DRUGS (6)
  1. RHEUMATREX [Suspect]
     Active Substance: METHOTREXATE SODIUM
     Dosage: 4 TABLETS (10 MG) WEEKLY
     Route: 048
     Dates: start: 201701, end: 201702
  2. RHEUMATREX [Suspect]
     Active Substance: METHOTREXATE SODIUM
     Dosage: 3.5 TABLET (8.75 MG) WEEKLY
     Route: 048
     Dates: start: 2017, end: 20170924
  3. RHEUMATREX [Suspect]
     Active Substance: METHOTREXATE SODIUM
     Dosage: 3 TABLETS (7.5 MG) WEEKLY
     Route: 048
     Dates: start: 201703, end: 2017
  4. RHEUMATREX [Suspect]
     Active Substance: METHOTREXATE SODIUM
     Dosage: 3 TABLETS (7.5 MG), WEEKLY
     Route: 048
     Dates: start: 2016, end: 201610
  5. RHEUMATREX [Suspect]
     Active Substance: METHOTREXATE SODIUM
     Indication: RHEUMATOID ARTHRITIS
     Dosage: 4 TABLETS (10MG) WEEKLY
     Route: 048
     Dates: start: 201605, end: 2016
  6. RHEUMATREX [Suspect]
     Active Substance: METHOTREXATE SODIUM
     Dosage: 3 TABLETS (7.5MG) WEEKLY
     Route: 048
     Dates: start: 201610, end: 201701

REACTIONS (3)
  - Hepatotoxicity [Unknown]
  - Hepatic enzyme increased [Recovered/Resolved with Sequelae]
  - Nodular regenerative hyperplasia [Unknown]

NARRATIVE: CASE EVENT DATE: 2016
